FAERS Safety Report 9486618 (Version 3)
Quarter: 2013Q4

REPORT INFORMATION
  Report Type: Spontaneous
  Country: NO (occurrence: NO)
  Receive Date: 20130829
  Receipt Date: 20131024
  Transmission Date: 20140711
  Serious: Yes (Disabling, Other)
  Sender: FDA-Public Use
  Company Number: NO-PFIZER INC-2013246607

PATIENT
  Age: 31 Year
  Sex: Female

DRUGS (6)
  1. CISPLATIN [Suspect]
     Indication: CERVIX CARCINOMA STAGE I
     Dosage: 75 MG, 1X/DAY
     Route: 042
     Dates: start: 20010115, end: 20010116
  2. FLUOROURACIL [Suspect]
     Indication: CERVIX CARCINOMA STAGE I
     Dosage: 1 G, 1X/DAY
     Route: 042
     Dates: start: 20010115, end: 20010116
  3. HOLOXAN [Suspect]
     Indication: CERVIX CARCINOMA STAGE I
     Dosage: 4 G, 1X/DAY
     Route: 042
     Dates: start: 20010115, end: 20010116
  4. UROMITEXAN [Suspect]
     Indication: CERVIX CARCINOMA STAGE I
     Dosage: 1 G, 3X/DAY
     Route: 042
     Dates: start: 20010115, end: 20010116
  5. FILGRASTIM [Concomitant]
     Dosage: UNK
  6. FOLIC ACID [Concomitant]
     Indication: CERVIX CARCINOMA STAGE I
     Dosage: 120 MG, DAILY
     Route: 042
     Dates: start: 20010115, end: 20010116

REACTIONS (1)
  - Cognitive disorder [Not Recovered/Not Resolved]
